FAERS Safety Report 21028881 (Version 1)
Quarter: 2022Q2

REPORT INFORMATION
  Report Type: Spontaneous
  Country: CN (occurrence: CN)
  Receive Date: 20220630
  Receipt Date: 20220630
  Transmission Date: 20220721
  Serious: Yes (Hospitalization, Other)
  Sender: FDA-Public Use
  Company Number: None

PATIENT
  Age: 9 Year
  Sex: Female
  Weight: 21 kg

DRUGS (6)
  1. CYCLOPHOSPHAMIDE [Suspect]
     Active Substance: CYCLOPHOSPHAMIDE
     Indication: Rhabdomyosarcoma
     Dosage: 0.45 G, QD, GLUCOSE SODIUM CHLORIDE SOLUTION 250ML + CYCLOPHOSPHAMIDE 0.45G
     Route: 041
     Dates: start: 20220118, end: 20220121
  2. DEXTROSE\SODIUM CHLORIDE [Suspect]
     Active Substance: DEXTROSE\SODIUM CHLORIDE
     Indication: Medication dilution
     Dosage: 250 ML, QD, GLUCOSE SODIUM CHLORIDE SOLUTION 250ML + CYCLOPHOSPHAMIDE 0.45G
     Route: 041
     Dates: start: 20220118, end: 20220121
  3. DEXTROSE\SODIUM CHLORIDE [Suspect]
     Active Substance: DEXTROSE\SODIUM CHLORIDE
     Dosage: 100 ML, QD (INTRA-PUMP INJECTION), GLUCOSE SODIUM CHLORIDE SOLUTION 100ML + TOPOTECAN INJECTION 1.3M
     Route: 050
     Dates: start: 20220118, end: 20220121
  4. SODIUM CHLORIDE [Suspect]
     Active Substance: SODIUM CHLORIDE
     Indication: Medication dilution
     Dosage: 50 ML, QD, 0.9% SODIUM CHLORIDE 50ML + VINDESINE SULFATE 2.7MG
     Route: 041
     Dates: start: 20220118
  5. TOPOTECAN [Suspect]
     Active Substance: TOPOTECAN HYDROCHLORIDE
     Indication: Rhabdomyosarcoma
     Dosage: 1.3 MG, QD (INTRA-PUMP INJECTION), GLUCOSE SODIUM CHLORIDE SOLUTION 100ML + TOPOTECAN INJECTION 1.3M
     Route: 050
     Dates: start: 20220118, end: 20220121
  6. VINDESINE SULFATE [Suspect]
     Active Substance: VINDESINE SULFATE
     Indication: Rhabdomyosarcoma
     Dosage: 2.7 MG, QD, ONCE, 0.9% SODIUM CHLORIDE 50ML + VINDESINE SULFATE 2.7MG
     Route: 041
     Dates: start: 20220118

REACTIONS (1)
  - Myelosuppression [Recovering/Resolving]

NARRATIVE: CASE EVENT DATE: 20220124
